FAERS Safety Report 15209664 (Version 1)
Quarter: 2018Q3

REPORT INFORMATION
  Report Type: Spontaneous
  Country: US (occurrence: US)
  Receive Date: 20180629
  Receipt Date: 20180629
  Transmission Date: 20181010
  Serious: Yes (Hospitalization)
  Sender: FDA-Public Use
  Company Number: None

PATIENT
  Age: 69 Year
  Sex: Male
  Weight: 110.4 kg

DRUGS (1)
  1. PHENTERMINE/TOPIRAMATE [Suspect]
     Active Substance: PHENTERMINE HYDROCHLORIDE\TOPIRAMATE
     Indication: WEIGHT DECREASED
     Dosage: OTHER DOSE:3.75/23 MG;?
     Route: 048
     Dates: start: 20180309, end: 20180330

REACTIONS (6)
  - Hallucination [None]
  - Acute kidney injury [None]
  - Hypotension [None]
  - Blood creatinine increased [None]
  - Confusional state [None]
  - Blood urea increased [None]

NARRATIVE: CASE EVENT DATE: 20180330
